FAERS Safety Report 21354556 (Version 1)
Quarter: 2022Q3

REPORT INFORMATION
  Report Type: Spontaneous
  Country: US (occurrence: None)
  Receive Date: 20220920
  Receipt Date: 20220920
  Transmission Date: 20221027
  Serious: Yes (Other)
  Sender: FDA-Public Use
  Company Number: US-ROCHE-3181907

PATIENT

DRUGS (1)
  1. KLONOPIN [Suspect]
     Active Substance: CLONAZEPAM
     Indication: Product used for unknown indication
     Route: 065

REACTIONS (8)
  - Angina pectoris [Unknown]
  - Malaise [Unknown]
  - Anxiety [Unknown]
  - Muscle twitching [Unknown]
  - Myalgia [Unknown]
  - Heart rate increased [Unknown]
  - Drug ineffective [Unknown]
  - Vision blurred [Unknown]
